FAERS Safety Report 6708698-X (Version None)
Quarter: 2010Q2

REPORT INFORMATION
  Report Type: 
  Country: None (occurrence: None)
  Receive Date: 20100503
  Receipt Date: 20100429
  Transmission Date: 20101027
  Serious: Yes (Life-Threatening)
  Sender: FDA-Public Use
  Company Number: GB-MERCK-1004GBR00124

PATIENT
  Age: 41 Year
  Sex: Female

DRUGS (2)
  1. EMEND [Suspect]
     Route: 048
     Dates: start: 20100427, end: 20100427
  2. CYCLOPHOSPHAMIDE [Concomitant]
     Route: 065

REACTIONS (5)
  - FACE OEDEMA [None]
  - HYPOTENSION [None]
  - PYREXIA [None]
  - RASH [None]
  - UNRESPONSIVE TO STIMULI [None]
